FAERS Safety Report 12421398 (Version 1)
Quarter: 2016Q2

REPORT INFORMATION
  Report Type: Spontaneous
  Country: FR (occurrence: FR)
  Receive Date: 20160531
  Receipt Date: 20160531
  Transmission Date: 20160815
  Serious: Yes (Hospitalization)
  Sender: FDA-Public Use
  Company Number: FR-SA-2016SA101198

PATIENT
  Age: 76 Year
  Sex: Male
  Weight: 46.6 kg

DRUGS (12)
  1. LEVEMIR [Suspect]
     Active Substance: INSULIN DETEMIR
     Indication: INSULIN-REQUIRING TYPE 2 DIABETES MELLITUS
     Route: 058
     Dates: end: 201601
  2. ALDACTONE [Concomitant]
     Active Substance: SPIRONOLACTONE
  3. VITAMIN B6 [Concomitant]
     Active Substance: PYRIDOXINE HYDROCHLORIDE
  4. IMOVANE [Concomitant]
     Active Substance: ZOPICLONE
  5. OXYBUTYNIN [Concomitant]
     Active Substance: OXYBUTYNIN
  6. FUROSEMIDE. [Concomitant]
     Active Substance: FUROSEMIDE
  7. DIFFU K [Concomitant]
     Active Substance: POTASSIUM CHLORIDE
  8. VITAMIN B1 [Concomitant]
     Active Substance: THIAMINE HYDROCHLORIDE
  9. LANTUS [Suspect]
     Active Substance: INSULIN GLARGINE
     Indication: INSULIN-REQUIRING TYPE 2 DIABETES MELLITUS
     Route: 058
     Dates: start: 201601
  10. ATARAX [Concomitant]
     Active Substance: HYDROXYZINE\HYDROXYZINE HYDROCHLORIDE
     Dosage: 25 MG FILM COATED DIVISIBLE TABLET
  11. LASILIX [Concomitant]
     Active Substance: FUROSEMIDE
  12. DITROPAN [Concomitant]
     Active Substance: OXYBUTYNIN CHLORIDE

REACTIONS (2)
  - Fall [Recovered/Resolved]
  - Hypoglycaemia [Recovered/Resolved]

NARRATIVE: CASE EVENT DATE: 201601
